FAERS Safety Report 4832826-4 (Version None)
Quarter: 2005Q4

REPORT INFORMATION
  Report Type: 
  Country: None (occurrence: None)
  Receive Date: 20051121
  Receipt Date: 20051109
  Transmission Date: 20060501
  Serious: Yes (Life-Threatening)
  Sender: FDA-Public Use
  Company Number: 2005AP05839

PATIENT
  Age: 75 Year
  Sex: Male
  Weight: 53 kg

DRUGS (1)
  1. MARCAINE [Suspect]
     Indication: SPINAL ANAESTHESIA
     Dosage: 4 ML GIVEN AT L4/5
     Route: 037

REACTIONS (3)
  - CARDIAC ARREST [None]
  - PROCEDURAL COMPLICATION [None]
  - PULMONARY EMBOLISM [None]
